FAERS Safety Report 8258066-7 (Version None)
Quarter: 2012Q2

REPORT INFORMATION
  Report Type: 
  Country: None (occurrence: None)
  Receive Date: 20120404
  Receipt Date: 20120327
  Transmission Date: 20120825
  Serious: Yes (Hospitalization)
  Sender: FDA-Public Use
  Company Number: US-JNJFOC-20120314354

PATIENT
  Sex: Male
  Weight: 90.5 kg

DRUGS (2)
  1. ZYTIGA [Suspect]
     Indication: PROSTATE CANCER
     Route: 048
     Dates: start: 20120210
  2. LANTUS [Concomitant]
     Indication: DIABETES MELLITUS
     Route: 058

REACTIONS (7)
  - BLOOD GLUCOSE FLUCTUATION [None]
  - VOMITING [None]
  - ARRHYTHMIA [None]
  - OEDEMA PERIPHERAL [None]
  - BLOOD POTASSIUM ABNORMAL [None]
  - JOINT SWELLING [None]
  - RED BLOOD CELL COUNT DECREASED [None]
